FAERS Safety Report 4696182-7 (Version None)
Quarter: 2005Q2

REPORT INFORMATION
  Report Type: 
  Country: None (occurrence: None)
  Receive Date: 20050620
  Receipt Date: 20050606
  Transmission Date: 20051028
  Serious: Yes (Hospitalization, Other)
  Sender: FDA-Public Use
  Company Number: A033900

PATIENT
  Age: 31 Year
  Sex: Male

DRUGS (1)
  1. CARDENALIN (DOXAZOSIN) [Suspect]
     Indication: HYPERTENSION
     Dosage: 4 MG DAILY ORAL
     Route: 048
     Dates: end: 20000201

REACTIONS (4)
  - DRUG INEFFECTIVE [None]
  - PCO2 INCREASED [None]
  - PO2 DECREASED [None]
  - PRIAPISM [None]
